FAERS Safety Report 26181700 (Version 1)
Quarter: 2025Q4

REPORT INFORMATION
  Report Type: Spontaneous
  Country: CN (occurrence: CN)
  Receive Date: 20251221
  Receipt Date: 20251221
  Transmission Date: 20260117
  Serious: Yes (Life-Threatening, Other)
  Sender: PURDUE
  Company Number: CN-NAPPMUNDI-GBR-2025-0131439

PATIENT
  Age: 74 Year
  Sex: Male
  Weight: 50 kg

DRUGS (1)
  1. MORPHINE SULFATE [Suspect]
     Active Substance: MORPHINE SULFATE
     Indication: Tumour pain
     Dosage: 30 MILLIGRAM, BID
     Route: 048
     Dates: start: 20251206, end: 202512

REACTIONS (11)
  - Dizziness [Recovered/Resolved]
  - Nausea [Recovered/Resolved]
  - Chest pain [Recovered/Resolved]
  - Hypertension [Recovered/Resolved]
  - Heart rate increased [Recovered/Resolved]
  - Dyspnoea [Recovered/Resolved]
  - Miosis [Recovered/Resolved]
  - Hyperhidrosis [Recovered/Resolved]
  - Respiratory acidosis [Recovered/Resolved]
  - Metabolic alkalosis [Recovered/Resolved]
  - Toxicity to various agents [Recovered/Resolved]

NARRATIVE: CASE EVENT DATE: 20251207
